FAERS Safety Report 5803786-4 (Version None)
Quarter: 2008Q3

REPORT INFORMATION
  Report Type: 
  Country: None (occurrence: None)
  Receive Date: 20080708
  Receipt Date: 20080312
  Transmission Date: 20090109
  Serious: No
  Sender: FDA-Public Use
  Company Number: US-AMGEN-KDL251257

PATIENT
  Sex: Female

DRUGS (2)
  1. KINERET [Suspect]
     Indication: RHEUMATOID ARTHRITIS
     Route: 058
     Dates: start: 20030627
  2. METHOTREXATE [Concomitant]
     Route: 058

REACTIONS (3)
  - ARTHRALGIA [None]
  - JOINT SWELLING [None]
  - PYREXIA [None]
